FAERS Safety Report 5875198-9 (Version None)
Quarter: 2008Q3

REPORT INFORMATION
  Report Type: 
  Country: None (occurrence: None)
  Receive Date: 20080904
  Receipt Date: 20080825
  Transmission Date: 20090109
  Serious: Yes (Death)
  Sender: FDA-Public Use
  Company Number: TCI2007A03767

PATIENT
  Age: 77 Year
  Sex: Male

DRUGS (6)
  1. ACTOS [Suspect]
     Indication: DIABETES MELLITUS
     Dosage: 15 MG (15 MG, 1 D) PER ORAL
     Route: 048
     Dates: start: 20060410, end: 20070310
  2. BASEN TABLETS 0.2 (VOGLIBOSE) [Concomitant]
  3. GLIMICRON (GLICLAZIDE) [Concomitant]
  4. MUCOSTA (REBAMIPIDE) [Concomitant]
  5. PERSELIN (ALLYLESTRENOL) [Concomitant]
  6. NICARDIPINE HYDROCHLORIDE [Concomitant]

REACTIONS (3)
  - ANAEMIA [None]
  - GENERAL PHYSICAL HEALTH DETERIORATION [None]
  - PLATELET COUNT DECREASED [None]
